FAERS Safety Report 7659538-6 (Version None)
Quarter: 2011Q3

REPORT INFORMATION
  Report Type: 
  Country: None (occurrence: None)
  Receive Date: 20110805
  Receipt Date: 20110802
  Transmission Date: 20111222
  Serious: Yes (Hospitalization)
  Sender: FDA-Public Use
  Company Number: BE-NAPPMUNDI-USA-2011-0064317

PATIENT
  Age: 40 Year
  Sex: Male

DRUGS (13)
  1. TRAMADOL HCL [Suspect]
     Indication: PAIN
     Dosage: 100 MG, DAILY
     Route: 048
     Dates: start: 20100823
  2. MORPHINE SULFATE [Suspect]
     Indication: PAIN
     Dosage: UNK UNK, DAILY
     Route: 048
     Dates: start: 20100819
  3. LITICAN                            /00690801/ [Concomitant]
     Indication: PRODUCT USED FOR UNKNOWN INDICATION
  4. TRAZODONE HCL [Concomitant]
     Indication: PRODUCT USED FOR UNKNOWN INDICATION
  5. TEMESTA                            /00273201/ [Concomitant]
     Indication: PRODUCT USED FOR UNKNOWN INDICATION
  6. MOTILIUM                           /00498201/ [Concomitant]
     Indication: PRODUCT USED FOR UNKNOWN INDICATION
  7. MOVICOL                            /01749801/ [Concomitant]
     Indication: PRODUCT USED FOR UNKNOWN INDICATION
  8. PRIMPERAN TAB [Concomitant]
     Indication: PRODUCT USED FOR UNKNOWN INDICATION
  9. ZANTAC [Concomitant]
     Indication: PRODUCT USED FOR UNKNOWN INDICATION
  10. DURAGESIC-100 [Concomitant]
     Indication: PAIN
     Dosage: 50 MCG, DAILY
     Route: 062
     Dates: start: 20100201, end: 20100901
  11. OMEPRAZOLE [Concomitant]
     Indication: PRODUCT USED FOR UNKNOWN INDICATION
  12. SUTENT [Suspect]
     Indication: ANGIOSARCOMA
     Dosage: 50 MG, DAILY
     Route: 048
     Dates: start: 20100712
  13. XANAX [Concomitant]
     Indication: PRODUCT USED FOR UNKNOWN INDICATION

REACTIONS (6)
  - OVERDOSE [None]
  - NAUSEA [None]
  - CONSTIPATION [None]
  - ANXIETY [None]
  - VOMITING [None]
  - AGITATION [None]
